FAERS Safety Report 10530233 (Version 1)
Quarter: 2014Q4

REPORT INFORMATION
  Report Type: Spontaneous
  Country: US (occurrence: None)
  Receive Date: 20141020
  Receipt Date: 20141020
  Transmission Date: 20150528
  Serious: No
  Sender: FDA-Public Use
  Company Number: None

PATIENT
  Age: 41 Year
  Sex: Female
  Weight: 83.46 kg

DRUGS (1)
  1. AZITHROMYCIN [Suspect]
     Active Substance: AZITHROMYCIN ANHYDROUS
     Indication: PHARYNGITIS STREPTOCOCCAL
     Dosage: 2 TABLETS TODAY THEN 1   ONCE DAILY TAKEN BY MOUTH
     Route: 048
     Dates: start: 20141018, end: 20141019

REACTIONS (3)
  - Insomnia [None]
  - Hallucination [None]
  - Heart rate increased [None]

NARRATIVE: CASE EVENT DATE: 20141018
